FAERS Safety Report 15162484 (Version 1)
Quarter: 2018Q3

REPORT INFORMATION
  Report Type: Spontaneous
  Country: DE (occurrence: DE)
  Receive Date: 20180718
  Receipt Date: 20180718
  Transmission Date: 20181010
  Serious: Yes (Other)
  Sender: FDA-Public Use
  Company Number: DE-009507513-2006-07-0009

PATIENT
  Age: 67 Year
  Sex: Female

DRUGS (3)
  1. FORTECORTIN [Concomitant]
     Active Substance: DEXAMETHASONE
     Indication: RADIOTHERAPY
     Dosage: DAILY DOSE: 4 MILLIGRAM(S) EVERY DAY
     Route: 048
     Dates: start: 20060410, end: 20060426
  2. TEMODAL [Suspect]
     Active Substance: TEMOZOLOMIDE
     Indication: GLIOBLASTOMA
     Route: 048
     Dates: start: 20060410, end: 20060503
  3. THERAPEUTIC RADIOPHARMACEUTICAL (UNSPECIFIED) [Concomitant]
     Active Substance: UNSPECIFIED INGREDIENT
     Dates: start: 20060410, end: 20060426

REACTIONS (5)
  - Dry mouth [Unknown]
  - Jaundice [Unknown]
  - Fatigue [Unknown]
  - Oedema peripheral [Unknown]
  - Transaminases increased [Recovering/Resolving]

NARRATIVE: CASE EVENT DATE: 20060424
